FAERS Safety Report 5190050-2 (Version None)
Quarter: 2006Q4

REPORT INFORMATION
  Report Type: 
  Country: None (occurrence: None)
  Receive Date: 20061222
  Receipt Date: 20061212
  Transmission Date: 20070319
  Serious: Yes (Hospitalization, Congenital Anomaly, Other)
  Sender: FDA-Public Use
  Company Number: FR-RB-004601-06

PATIENT
  Age: 29 Year
  Sex: Female

DRUGS (1)
  1. SUBUTEX [Suspect]
     Route: 060
     Dates: start: 20060308

REACTIONS (3)
  - CONGENITAL ANOMALY [None]
  - CONGENITAL MUSCULOSKELETAL ANOMALY [None]
  - DRUG EXPOSURE DURING PREGNANCY [None]
